FAERS Safety Report 6139652-7 (Version None)
Quarter: 2009Q1

REPORT INFORMATION
  Report Type: 
  Country: None (occurrence: None)
  Receive Date: 20090330
  Receipt Date: 20081024
  Transmission Date: 20090719
  Serious: Yes (Death, Hospitalization, Other)
  Sender: FDA-Public Use
  Company Number: 175819USA

PATIENT
  Age: 46 Year
  Sex: Male

DRUGS (6)
  1. IFOSFAMIDE AND MESNA [Suspect]
     Indication: BURKITT'S LYMPHOMA
     Dosage: (2.95 GRAM), INTRAVENOUS
     Route: 042
     Dates: start: 20080801, end: 20080803
  2. IFOSFAMIDE [Suspect]
  3. RITUXIMAB [Concomitant]
  4. ETOPOSIDE [Concomitant]
  5. CYTARABINE [Concomitant]
  6. METHOTREXATE [Concomitant]

REACTIONS (1)
  - NEUROTOXICITY [None]
